FAERS Safety Report 7573255-2 (Version None)
Quarter: 2011Q2

REPORT INFORMATION
  Report Type: 
  Country: None (occurrence: None)
  Receive Date: 20110627
  Receipt Date: 20110623
  Transmission Date: 20111010
  Serious: Yes (Other)
  Sender: FDA-Public Use
  Company Number: GB-TEVA-287795ISR

PATIENT
  Age: 51 Year
  Sex: Female

DRUGS (1)
  1. AMITRIPTYLINE HCL [Suspect]
     Indication: BACK PAIN
     Route: 048
     Dates: start: 20101015, end: 20110426

REACTIONS (4)
  - JOINT STIFFNESS [None]
  - INFLAMMATION [None]
  - OFF LABEL USE [None]
  - ARTHRALGIA [None]
